FAERS Safety Report 10955520 (Version 1)
Quarter: 2015Q1

REPORT INFORMATION
  Report Type: Spontaneous
  Country: PL (occurrence: PL)
  Receive Date: 20150326
  Receipt Date: 20150326
  Transmission Date: 20150721
  Serious: Yes (Hospitalization, Other)
  Sender: FDA-Public Use
  Company Number: PL-ROCHE-1555155

PATIENT
  Age: 65 Year
  Sex: Female

DRUGS (11)
  1. RITUXIMAB [Suspect]
     Active Substance: RITUXIMAB
     Indication: DIFFUSE LARGE B-CELL LYMPHOMA
     Route: 065
  2. DEXAVEN [Concomitant]
     Active Substance: DEXAMETHASONE
     Route: 065
     Dates: start: 20150220
  3. DOXORUBICIN [Concomitant]
     Active Substance: DOXORUBICIN
     Indication: DIFFUSE LARGE B-CELL LYMPHOMA
  4. PREDNISOLONE. [Concomitant]
     Active Substance: PREDNISOLONE
     Indication: DIFFUSE LARGE B-CELL LYMPHOMA
  5. DEPOCYTE [Concomitant]
     Active Substance: CYTARABINE
     Route: 065
     Dates: start: 20150206
  6. METHOTREXATE [Concomitant]
     Active Substance: METHOTREXATE
     Dosage: HIGH DOSE
     Route: 065
     Dates: start: 20150206
  7. ARA-C [Concomitant]
     Active Substance: CYTARABINE
     Route: 039
  8. DEXAMETHASONE. [Concomitant]
     Active Substance: DEXAMETHASONE
     Route: 042
     Dates: start: 20150206
  9. CYCLOPHOSPHAMIDE. [Concomitant]
     Active Substance: CYCLOPHOSPHAMIDE
     Indication: DIFFUSE LARGE B-CELL LYMPHOMA
  10. VINCRISTINE [Concomitant]
     Active Substance: VINCRISTINE
     Indication: DIFFUSE LARGE B-CELL LYMPHOMA
  11. DEPOCYTE [Concomitant]
     Active Substance: CYTARABINE
     Route: 065
     Dates: start: 20150220

REACTIONS (7)
  - Abdominal pain upper [Unknown]
  - Diffuse large B-cell lymphoma recurrent [Unknown]
  - Intervertebral disc degeneration [Unknown]
  - Cerebral ischaemia [Unknown]
  - Gastric ulcer [Unknown]
  - Intervertebral disc disorder [Unknown]
  - Paralysis flaccid [Unknown]

NARRATIVE: CASE EVENT DATE: 201303
